FAERS Safety Report 17560820 (Version 2)
Quarter: 2021Q1

REPORT INFORMATION
  Report Type: Spontaneous
  Country: US (occurrence: US)
  Receive Date: 20200319
  Receipt Date: 20210114
  Transmission Date: 20210419
  Serious: Yes (Hospitalization)
  Sender: FDA-Public Use
  Company Number: US-MYLANLABS-2020M1028929

PATIENT
  Age: 75 Year
  Sex: Male

DRUGS (3)
  1. MORPHINE [Concomitant]
     Active Substance: MORPHINE
     Indication: ARTHRALGIA
     Dosage: 40MG ON DAY 1, 63MG EQUIVALENTS ON DAY 2, AND DAY 15
     Route: 048
  2. GABAPENTIN. [Suspect]
     Active Substance: GABAPENTIN
     Indication: NEUROPATHY PERIPHERAL
     Dosage: 1200 MILLIGRAM, QD
     Route: 065
  3. CEPHALEXIN                         /00145501/ [Concomitant]
     Active Substance: CEPHALEXIN
     Indication: PROPHYLAXIS
     Route: 065

REACTIONS (3)
  - Hallucination, visual [Unknown]
  - Withdrawal syndrome [Recovering/Resolving]
  - Delirium [Recovered/Resolved]
